FAERS Safety Report 6408727-7 (Version None)
Quarter: 2009Q4

REPORT INFORMATION
  Report Type: 
  Country: None (occurrence: None)
  Receive Date: 20091019
  Receipt Date: 20091007
  Transmission Date: 20100525
  Serious: Yes (Other)
  Sender: FDA-Public Use
  Company Number: GXKR2007GB08308

PATIENT
  Age: 79 Year
  Sex: Male
  Weight: 70 kg

DRUGS (8)
  1. LISINOPRIL [Suspect]
     Indication: HYPERTENSION
     Dosage: 5 MG, QD, ORAL
     Route: 048
  2. NIFEDIPINE [Suspect]
     Indication: DUODENAL ULCER
     Dosage: 5 MG, ORAL
     Route: 048
  3. FLOMAX MR                    (TAMSULOSIN HYDROCHLORIDE) [Suspect]
     Indication: POLLAKIURIA
     Dosage: 0.4 MG, ORAL
     Route: 048
     Dates: start: 20070906, end: 20070908
  4. CARBOCISTEINE            (CARBOCISTEINE) [Concomitant]
  5. COMBIVENT [Concomitant]
  6. LANSOPRAZOLE [Concomitant]
  7. PARACETAMOL            (PARACETAMOL) [Concomitant]
  8. ADVAIR HFA [Concomitant]

REACTIONS (3)
  - DRUG INTERACTION [None]
  - DYSPNOEA [None]
  - ORTHOSTATIC HYPOTENSION [None]
